FAERS Safety Report 4894699-3 (Version None)
Quarter: 2006Q1

REPORT INFORMATION
  Report Type: 
  Country: None (occurrence: None)
  Receive Date: 20060130
  Receipt Date: 20060119
  Transmission Date: 20060701
  Serious: Yes (Death)
  Sender: FDA-Public Use
  Company Number: US-JNJFOC-20031000603

PATIENT
  Sex: Male

DRUGS (2)
  1. INFLIXIMAB [Suspect]
     Indication: RHEUMATOID ARTHRITIS
     Route: 042
  2. MEDROL [Concomitant]

REACTIONS (2)
  - MALIGNANT MELANOMA [None]
  - RESPIRATORY ARREST [None]
